FAERS Safety Report 4551052-X (Version None)
Quarter: 2005Q1

REPORT INFORMATION
  Report Type: 
  Country: None (occurrence: None)
  Receive Date: 20050113
  Receipt Date: 20041011
  Transmission Date: 20050727
  Serious: No
  Sender: FDA-Public Use
  Company Number: US-BRISTOL-MYERS SQUIBB COMPANY-12728499

PATIENT
  Age: 40 Year
  Sex: Female

DRUGS (2)
  1. DESYREL [Suspect]
     Indication: INSOMNIA
     Route: 048
  2. WELLBUTRIN SR [Concomitant]

REACTIONS (2)
  - BLOOD PROLACTIN INCREASED [None]
  - GALACTORRHOEA [None]
